FAERS Safety Report 5571347-0 (Version None)
Quarter: 2007Q4

REPORT INFORMATION
  Report Type: 
  Country: None (occurrence: None)
  Receive Date: 20071221
  Receipt Date: 20070807
  Transmission Date: 20080405
  Serious: No
  Sender: FDA-Public Use
  Company Number: A0668681A

PATIENT
  Age: 57 Year
  Sex: Male

DRUGS (6)
  1. FLONASE [Suspect]
     Indication: DRUG USE FOR UNKNOWN INDICATION
     Dosage: 2SPR PER DAY
     Route: 045
     Dates: start: 20070713
  2. RISPERDAL [Concomitant]
  3. LORTAB [Concomitant]
  4. PROZAC [Concomitant]
  5. XANAX [Concomitant]
  6. LISINOPRIL [Concomitant]

REACTIONS (1)
  - DRUG INEFFECTIVE [None]
